FAERS Safety Report 9472114 (Version 1)
Quarter: 2013Q3

REPORT INFORMATION
  Report Type: Spontaneous
  Country: US (occurrence: US)
  Receive Date: 20130823
  Receipt Date: 20130823
  Transmission Date: 20140515
  Serious: No
  Sender: FDA-Public Use
  Company Number: US-009507513-1308USA005438

PATIENT
  Sex: Female

DRUGS (2)
  1. COZAAR [Suspect]
     Indication: BLOOD PRESSURE INCREASED
     Dosage: 50 MG ONCE DAILY
     Route: 048
     Dates: start: 20130702
  2. INSULIN [Concomitant]

REACTIONS (6)
  - Urine odour abnormal [Not Recovered/Not Resolved]
  - Headache [Not Recovered/Not Resolved]
  - Blood glucose increased [Unknown]
  - Pain in extremity [Unknown]
  - Myalgia [Unknown]
  - Cough [Unknown]
